FAERS Safety Report 21769169 (Version 2)
Quarter: 2023Q1

REPORT INFORMATION
  Report Type: Spontaneous
  Country: DE (occurrence: DE)
  Receive Date: 20221222
  Receipt Date: 20230111
  Transmission Date: 20230417
  Serious: Yes (Hospitalization, Congenital Anomaly, Other)
  Sender: FDA-Public Use
  Company Number: None

PATIENT
  Sex: Male
  Weight: 3 kg

DRUGS (2)
  1. LEVETIRACETAM [Suspect]
     Active Substance: LEVETIRACETAM
     Indication: Epilepsy
     Dosage: 3000 [MG/D ]/ INITIAL 2000MG DAILY, DOSAGE INCREASED FROM WEEK 14+4 TO 3000MG DAILY
     Route: 064
     Dates: start: 20201005, end: 20210716
  2. DIETARY SUPPLEMENT\MINERALS\VITAMINS [Suspect]
     Active Substance: DIETARY SUPPLEMENT\MINERALS\VITAMINS
     Indication: Product used for unknown indication
     Dosage: UNKNOWN
     Route: 064

REACTIONS (4)
  - Ventricular septal defect [Recovered/Resolved with Sequelae]
  - Foetal exposure during pregnancy [Unknown]
  - Atrial septal defect [Recovered/Resolved with Sequelae]
  - Small for dates baby [Unknown]
